FAERS Safety Report 4324936-5 (Version None)
Quarter: 2004Q1

REPORT INFORMATION
  Report Type: 
  Country: None (occurrence: None)
  Receive Date: 20040325
  Receipt Date: 20040325
  Transmission Date: 20041129
  Serious: Yes (Life-Threatening)
  Sender: FDA-Public Use
  Company Number: None

PATIENT
  Age: 58 Year
  Sex: Female
  Weight: 73 kg

DRUGS (1)
  1. WARFARIN SODIUM [Suspect]
     Dosage: ONCE DAILY
     Dates: start: 20030101, end: 20040101

REACTIONS (1)
  - HAEMORRHAGE INTRACRANIAL [None]
